FAERS Safety Report 22331940 (Version 1)
Quarter: 2023Q2

REPORT INFORMATION
  Report Type: Spontaneous
  Country: AR (occurrence: AR)
  Receive Date: 20230517
  Receipt Date: 20230517
  Transmission Date: 20230722
  Serious: Yes (Other)
  Sender: FDA-Public Use
  Company Number: AR-PFIZER INC-PV202300086572

PATIENT
  Age: 64 Year
  Sex: Female

DRUGS (2)
  1. XELJANZ XR [Suspect]
     Active Substance: TOFACITINIB CITRATE
     Indication: Rheumatoid arthritis
     Dosage: 11 MG, 1X/DAY
  2. OMEPRAZOLE [Concomitant]
     Active Substance: OMEPRAZOLE
     Indication: Abdominal discomfort

REACTIONS (5)
  - Cataract [Not Recovered/Not Resolved]
  - Gastritis [Not Recovered/Not Resolved]
  - Phagocytosis [Not Recovered/Not Resolved]
  - Hypertension [Not Recovered/Not Resolved]
  - Cardiovascular disorder [Not Recovered/Not Resolved]
